FAERS Safety Report 6153582-6 (Version None)
Quarter: 2009Q2

REPORT INFORMATION
  Report Type: 
  Country: None (occurrence: None)
  Receive Date: 20090409
  Receipt Date: 20090407
  Transmission Date: 20091009
  Serious: Yes (Hospitalization)
  Sender: FDA-Public Use
  Company Number: 0428FLUOROCIS09

PATIENT
  Age: 51 Year
  Sex: Female

DRUGS (4)
  1. FLUOROURACIL [Suspect]
     Indication: LIP AND/OR ORAL CAVITY CANCER
     Dosage: 1890 MG, IV
     Route: 042
     Dates: start: 20081020, end: 20081024
  2. FLUOROURACIL [Suspect]
     Indication: SQUAMOUS CELL CARCINOMA
     Dosage: 1890 MG, IV
     Route: 042
     Dates: start: 20081020, end: 20081024
  3. CISPLATIN [Suspect]
     Indication: LIP AND/OR ORAL CAVITY CANCER
     Dosage: 38 MG, IV
     Route: 042
     Dates: start: 20081020, end: 20081024
  4. CISPLATIN [Suspect]
     Indication: SQUAMOUS CELL CARCINOMA
     Dosage: 38 MG, IV
     Route: 042
     Dates: start: 20081020, end: 20081024

REACTIONS (1)
  - DEMYELINATION [None]
